FAERS Safety Report 25434384 (Version 1)
Quarter: 2025Q2

REPORT INFORMATION
  Report Type: Spontaneous
  Country: CN (occurrence: CN)
  Receive Date: 20250613
  Receipt Date: 20250613
  Transmission Date: 20250717
  Serious: Yes (Hospitalization)
  Sender: PFIZER
  Company Number: CN-PFIZER INC-PV202500069317

PATIENT
  Age: 10 Year
  Sex: Female
  Weight: 23 kg

DRUGS (1)
  1. METHOTREXATE SODIUM [Suspect]
     Active Substance: METHOTREXATE SODIUM
     Indication: Acute lymphocytic leukaemia
     Dosage: 2.2 G, 1X/DAY (VIA PUMP)
     Dates: start: 20250528, end: 20250528

REACTIONS (1)
  - Chemotherapeutic drug level increased [Recovered/Resolved]

NARRATIVE: CASE EVENT DATE: 20250529
